FAERS Safety Report 6404627-7 (Version None)
Quarter: 2009Q4

REPORT INFORMATION
  Report Type: 
  Country: None (occurrence: None)
  Receive Date: 20091016
  Receipt Date: 20091012
  Transmission Date: 20100525
  Serious: Yes (Death)
  Sender: FDA-Public Use
  Company Number: DK-ROCHE-662520

PATIENT
  Sex: Female
  Weight: 85.3 kg

DRUGS (12)
  1. RIVOTRIL [Suspect]
     Indication: SEDATIVE THERAPY
     Route: 048
     Dates: start: 20090416
  2. ERYTHROMYCIN [Suspect]
     Indication: DRUG USE FOR UNKNOWN INDICATION
     Dosage: PROBABLY THE PATIENT RECEIVED ONLY 1 DOSE.
     Route: 065
     Dates: start: 20090507
  3. LYSANTIN [Suspect]
     Route: 048
     Dates: start: 20080206
  4. CISORDINOL [Suspect]
     Route: 048
     Dates: start: 20090206
  5. IMIPRAMINE [Suspect]
     Dosage: DRUG NAME: IMIPRAMIN ^DAK^
     Route: 048
     Dates: start: 20080206
  6. LEPONEX [Suspect]
     Dosage: FREQ: 200 MG AT  8 AM + 300 MG AT 12 AM + 300 MG AT 6 PM
     Route: 048
     Dates: start: 20080206
  7. RISPERIDONE [Suspect]
     Dosage: INDICATION: ANTIPSYCHOTIC DRUG LEVEL THERAPEUTIC
     Route: 048
     Dates: start: 20090216
  8. TRUXAL [Suspect]
     Dosage: ALSO REPORTED AS: SAEM DOSE AS LEPONEX BY FEVER.
     Route: 048
     Dates: start: 20090318
  9. LACTULOSE [Concomitant]
     Indication: LAXATIVE SUPPORTIVE CARE
     Route: 048
     Dates: start: 20041111
  10. PINEX [Concomitant]
     Indication: PAIN
     Dosage: FEREQ REPORTED AS: 1G MAX. 3TIMES DAILY.
     Route: 048
     Dates: start: 19960919
  11. ACTILAX [Concomitant]
     Indication: LAXATIVE SUPPORTIVE CARE
     Dosage: DOSE 15 DROPS QD
     Route: 048
     Dates: start: 20070821
  12. MULTITABS [Concomitant]
     Route: 048
     Dates: start: 20041111

REACTIONS (1)
  - SUDDEN DEATH [None]
